FAERS Safety Report 4679183-4 (Version None)
Quarter: 2005Q2

REPORT INFORMATION
  Report Type: 
  Country: None (occurrence: None)
  Receive Date: 20050526
  Receipt Date: 20050301
  Transmission Date: 20051028
  Serious: Yes (Other)
  Sender: FDA-Public Use
  Company Number: WAES 0503USA00032

PATIENT
  Sex: 0

DRUGS (3)
  1. VYTORIN [Suspect]
     Dosage: UNK/UNK/PO
     Route: 048
  2. LIPITOR [Concomitant]
  3. CYCLOSPORINE [Concomitant]

REACTIONS (1)
  - RHABDOMYOLYSIS [None]
